FAERS Safety Report 4615734-3 (Version None)
Quarter: 2005Q2

REPORT INFORMATION
  Report Type: 
  Country: None (occurrence: None)
  Receive Date: 20050310
  Receipt Date: 20050126
  Transmission Date: 20051028
  Serious: Yes (Other)
  Sender: FDA-Public Use
  Company Number: F03200500016

PATIENT
  Age: 54 Year
  Sex: Female
  Weight: 68.9467 kg

DRUGS (2)
  1. ELOXATIN [Suspect]
     Indication: OVARIAN CANCER
     Dosage: 115 MG Q3W - INTRAVENOUS NOS
     Route: 042
     Dates: start: 20050103, end: 20050103
  2. PATUPILONE - SOLUTION [Suspect]
     Indication: OVARIAN CANCER
     Dosage: ^2.1 MG X 2 WEEKS EVERY 3 WEEKS^ - INTRAVENOUS NOS
     Route: 042

REACTIONS (1)
  - HYPERSENSITIVITY [None]
